FAERS Safety Report 6962520-5 (Version None)
Quarter: 2010Q3

REPORT INFORMATION
  Report Type: 
  Country: None (occurrence: None)
  Receive Date: 20100902
  Receipt Date: 20100826
  Transmission Date: 20110219
  Serious: Yes (Hospitalization)
  Sender: FDA-Public Use
  Company Number: US-BAYER-201030356NA

PATIENT
  Age: 21 Year
  Sex: Female

DRUGS (1)
  1. MIRENA [Suspect]
     Indication: CONTRACEPTION
     Dosage: FREQUENCY CONTINUOUS
     Route: 015
     Dates: start: 20080101, end: 20100810

REACTIONS (9)
  - ABDOMINAL PAIN [None]
  - CERVICITIS [None]
  - CONSTIPATION [None]
  - DEVICE DISLOCATION [None]
  - MENSTRUATION DELAYED [None]
  - PREGNANCY TEST NEGATIVE [None]
  - PREGNANCY WITH CONTRACEPTIVE DEVICE [None]
  - URINARY TRACT INFECTION [None]
  - VAGINITIS BACTERIAL [None]
